FAERS Safety Report 4582523-8 (Version None)
Quarter: 2005Q1

REPORT INFORMATION
  Report Type: 
  Country: None (occurrence: None)
  Receive Date: 20050211
  Receipt Date: 20050211
  Transmission Date: 20050727
  Serious: Yes (Life-Threatening)
  Sender: FDA-Public Use
  Company Number: None

PATIENT
  Age: 80 Year
  Sex: Female
  Weight: 97.7 kg

DRUGS (7)
  1. AVELOX [Suspect]
     Indication: PROPHYLAXIS
     Dosage: 400 MG IV QD
     Route: 042
     Dates: start: 20050131
  2. BETAPACE [Suspect]
     Dosage: 120 MG PO BID
     Route: 048
     Dates: start: 20050131
  3. POTASSIUM CHLORIDE [Concomitant]
  4. LASIX [Concomitant]
  5. ZOCOR [Concomitant]
  6. ASPIRIN [Concomitant]
  7. GABAPENTIN [Concomitant]

REACTIONS (3)
  - CARDIAC ARREST [None]
  - TORSADE DE POINTES [None]
  - VENTRICULAR TACHYCARDIA [None]
